FAERS Safety Report 9784236 (Version 1)
Quarter: 2013Q4

REPORT INFORMATION
  Report Type: Spontaneous
  Country: US (occurrence: US)
  Receive Date: 20131226
  Receipt Date: 20131226
  Transmission Date: 20140711
  Serious: No
  Sender: FDA-Public Use
  Company Number: US-BIOGENIDEC-2013BI121110

PATIENT
  Sex: Female

DRUGS (2)
  1. TECFIDERA [Suspect]
     Indication: PRODUCT USED FOR UNKNOWN INDICATION
     Route: 048
     Dates: start: 20130624, end: 20130701
  2. TECFIDERA [Suspect]
     Indication: PRODUCT USED FOR UNKNOWN INDICATION
     Route: 048
     Dates: start: 20130702

REACTIONS (3)
  - Alopecia [Unknown]
  - Flushing [Unknown]
  - Hot flush [Unknown]
